FAERS Safety Report 14815248 (Version 3)
Quarter: 2018Q2

REPORT INFORMATION
  Report Type: Report from Study
  Country: US (occurrence: US)
  Receive Date: 20180426
  Receipt Date: 20180601
  Transmission Date: 20180711
  Serious: Yes (Other)
  Sender: FDA-Public Use
  Company Number: US-JAZZ-2018-US-006431

PATIENT
  Sex: Female

DRUGS (21)
  1. XYREM [Suspect]
     Active Substance: SODIUM OXYBATE
     Indication: NARCOLEPSY
     Dosage: 2.5 G, BID
     Route: 048
     Dates: start: 200601, end: 200604
  2. ASPIRIN 81 [Concomitant]
     Active Substance: ASPIRIN
  3. CALCIUM + VIT D [Concomitant]
     Active Substance: CALCIUM\VITAMIN D
  4. FUROSEMIDE. [Concomitant]
     Active Substance: FUROSEMIDE
  5. LIPITOR [Concomitant]
     Active Substance: ATORVASTATIN CALCIUM
  6. MODAFINIL. [Concomitant]
     Active Substance: MODAFINIL
  7. RITALIN [Concomitant]
     Active Substance: METHYLPHENIDATE HYDROCHLORIDE
  8. PARACETAMOL [Concomitant]
     Active Substance: ACETAMINOPHEN
  9. XYREM [Suspect]
     Active Substance: SODIUM OXYBATE
     Dosage: DOSE ADJUSTMENTS
     Route: 048
     Dates: start: 200604, end: 201109
  10. NUVIGIL [Concomitant]
     Active Substance: ARMODAFINIL
  11. XYREM [Suspect]
     Active Substance: SODIUM OXYBATE
     Dosage: 4.5 G, BID
     Route: 048
     Dates: start: 201109
  12. IMIPRAMINE PAMOATE. [Concomitant]
     Active Substance: IMIPRAMINE PAMOATE
  13. LEVOTHYROXINE. [Concomitant]
     Active Substance: LEVOTHYROXINE
  14. ESOMEPRAZOLE MAGNESIUM. [Concomitant]
     Active Substance: ESOMEPRAZOLE MAGNESIUM
  15. DOCUSATE SODIUM. [Concomitant]
     Active Substance: DOCUSATE SODIUM
  16. VITAMIN E-C [Concomitant]
  17. ATORVASTATIN [Concomitant]
     Active Substance: ATORVASTATIN
  18. SENNOSIDES A+B [Concomitant]
     Active Substance: SENNOSIDES A AND B
  19. VITAMIN D2 [Concomitant]
     Active Substance: ERGOCALCIFEROL
  20. OXYCODONE HYDROCHLORIDE. [Concomitant]
     Active Substance: OXYCODONE HYDROCHLORIDE
  21. EVISTA [Concomitant]
     Active Substance: RALOXIFENE HYDROCHLORIDE

REACTIONS (4)
  - Confusional state [Not Recovered/Not Resolved]
  - Surgery [Recovering/Resolving]
  - Disorientation [Recovered/Resolved]
  - Dementia [Not Recovered/Not Resolved]

NARRATIVE: CASE EVENT DATE: 2015
